FAERS Safety Report 18429776 (Version 1)
Quarter: 2020Q4

REPORT INFORMATION
  Report Type: Spontaneous
  Country: FR (occurrence: FR)
  Receive Date: 20201027
  Receipt Date: 20201027
  Transmission Date: 20210114
  Serious: Yes (Other)
  Sender: FDA-Public Use
  Company Number: FR-LUPIN PHARMACEUTICALS INC.-2020-07860

PATIENT
  Sex: Male

DRUGS (3)
  1. AZITHROMYCIN ANHYDROUS. [Suspect]
     Active Substance: AZITHROMYCIN ANHYDROUS
     Dosage: 250 MILLIGRAM, QD,ON THE FOLLOWING 4 DAYS
     Route: 065
     Dates: start: 2020, end: 2020
  2. HYDROXYCHLOROQUINE [Suspect]
     Active Substance: HYDROXYCHLOROQUINE
     Indication: COVID-19
     Dosage: 200 MILLIGRAM, TID,PLANNED FOR 10 DAYS
     Route: 065
     Dates: start: 2020, end: 2020
  3. AZITHROMYCIN ANHYDROUS. [Suspect]
     Active Substance: AZITHROMYCIN ANHYDROUS
     Indication: COVID-19
     Dosage: 500 MILLIGRAM,ON THE FIRST DAY
     Route: 065
     Dates: start: 2020, end: 2020

REACTIONS (2)
  - Off label use [Unknown]
  - Long QT syndrome [Unknown]

NARRATIVE: CASE EVENT DATE: 2020
